FAERS Safety Report 19260594 (Version 1)
Quarter: 2021Q2

REPORT INFORMATION
  Report Type: Spontaneous
  Country: US (occurrence: US)
  Receive Date: 20210514
  Receipt Date: 20210514
  Transmission Date: 20210717
  Serious: Yes (Other)
  Sender: FDA-Public Use
  Company Number: US-GREER LABORATORIES, INC.-2110574

PATIENT
  Age: 32 Year
  Sex: Female
  Weight: 72.73 kg

DRUGS (8)
  1. POLLENS ? WEEDS AND GARDEN PLANTS, GOLDENROD SOLIDAGO CANADENSIS [Suspect]
     Active Substance: SOLIDAGO CANADENSIS POLLEN
     Route: 058
     Dates: start: 20210315, end: 20210405
  2. PROAIR HFA [Concomitant]
     Active Substance: ALBUTEROL SULFATE
     Route: 055
  3. POLLENS ? TREES, BIRCH MIX [Suspect]
     Active Substance: BETULA NIGRA POLLEN\BETULA PAPYRIFERA POLLEN\BETULA PENDULA POLLEN
     Route: 058
     Dates: start: 20210315, end: 20210405
  4. WIXELA INHUB [Concomitant]
     Active Substance: FLUTICASONE PROPIONATE\SALMETEROL XINAFOATE
     Route: 055
  5. ANIMAL ALLERGENS, DOG EPITHELIA, CANIS FAMILIARIS [Suspect]
     Active Substance: CANIS LUPUS FAMILIARIS SKIN
     Route: 058
     Dates: start: 20210315, end: 20210405
  6. STANDARDIZED MITE MIX [Suspect]
     Active Substance: DERMATOPHAGOIDES FARINAE\DERMATOPHAGOIDES PTERONYSSINUS
     Route: 058
     Dates: start: 20210315, end: 20210405
  7. POLLENS ? TREES, EASTERN OAK MIX [Suspect]
     Active Substance: QUERCUS ALBA POLLEN\QUERCUS RUBRA POLLEN\QUERCUS VELUTINA POLLEN
     Route: 058
     Dates: start: 20210315, end: 20210405
  8. POLLENS ? TREES, BEECH, AMERICAN, FAGUS GRANDIFOLIA [Suspect]
     Active Substance: FAGUS GRANDIFOLIA POLLEN
     Indication: RHINITIS ALLERGIC
     Route: 058
     Dates: start: 20210315, end: 20210405

REACTIONS (6)
  - Anaphylactic reaction [Unknown]
  - Injection site bruising [Unknown]
  - Headache [Unknown]
  - Urticaria [Unknown]
  - Pruritus [Unknown]
  - Sneezing [Unknown]

NARRATIVE: CASE EVENT DATE: 20210405
